FAERS Safety Report 17255989 (Version 3)
Quarter: 2020Q1

REPORT INFORMATION
  Report Type: Report from Study
  Country: None (occurrence: DE)
  Receive Date: 20200110
  Receipt Date: 20200302
  Transmission Date: 20200409
  Serious: Yes (Death, Hospitalization, Other)
  Sender: FDA-Public Use
  Company Number: DE-ABBVIE-19K-062-3216228-00

PATIENT
  Age: 79 Year
  Sex: Male

DRUGS (15)
  1. DUODOPA [Suspect]
     Active Substance: CARBIDOPA\LEVODOPA
     Indication: PARKINSON^S DISEASE
     Dosage: MD 10.0 ML CRD 5.5 ML/H ED 2.0 ML
     Route: 050
     Dates: start: 20180703
  2. METFORMIN [Concomitant]
     Active Substance: METFORMIN HYDROCHLORIDE
     Indication: PRODUCT USED FOR UNKNOWN INDICATION
     Route: 048
     Dates: start: 20200124
  3. RIVASTIGMIN [Concomitant]
     Active Substance: RIVASTIGMINE
     Indication: PRODUCT USED FOR UNKNOWN INDICATION
     Dosage: 1 PATCH / 24 HOURS INTERMITTENTLY CONTINUOUSLY
     Dates: start: 20200124
  4. FINASTERID [Concomitant]
     Active Substance: FINASTERIDE
     Indication: PRODUCT USED FOR UNKNOWN INDICATION
     Route: 048
  5. PARACETAMOL [Concomitant]
     Active Substance: ACETAMINOPHEN
     Indication: PAIN
     Dosage: IN CASE OF PAIN, MAX. 3 G / 24 HOURS
  6. PANTOPRAZOL [Concomitant]
     Active Substance: PANTOPRAZOLE SODIUM
     Indication: PRODUCT USED FOR UNKNOWN INDICATION
  7. PRAVASTATIN. [Concomitant]
     Active Substance: PRAVASTATIN
     Indication: PRODUCT USED FOR UNKNOWN INDICATION
     Route: 048
     Dates: start: 20200124
  8. DUODOPA [Suspect]
     Active Substance: CARBIDOPA\LEVODOPA
     Dosage: MD 10.0 ML CRD 4 ML/H CRN 2 ML/H (20 MG/ML + 5 MG/ML)
     Route: 050
     Dates: start: 20200124, end: 2020
  9. PREGABALIN. [Concomitant]
     Active Substance: PREGABALIN
     Indication: PRODUCT USED FOR UNKNOWN INDICATION
     Route: 048
  10. JONOSTERIL [Concomitant]
     Indication: PRODUCT USED FOR UNKNOWN INDICATION
     Dosage: 1000 ML ADMINISTER FOR 24 HOURS?D5 PLASTIK
     Route: 042
     Dates: start: 20200124
  11. CLEXANE [Concomitant]
     Active Substance: ENOXAPARIN SODIUM
     Indication: PRODUCT USED FOR UNKNOWN INDICATION
     Dosage: 40 MG/ 0.4 ML
     Route: 058
  12. CIPRALEX [Concomitant]
     Active Substance: ESCITALOPRAM OXALATE
     Indication: PRODUCT USED FOR UNKNOWN INDICATION
     Route: 048
     Dates: start: 20200124
  13. NACOM RETARD [Concomitant]
     Active Substance: CARBIDOPA\LEVODOPA
     Indication: PRODUCT USED FOR UNKNOWN INDICATION
  14. TORASEMID [Concomitant]
     Active Substance: TORSEMIDE
     Indication: PRODUCT USED FOR UNKNOWN INDICATION
     Route: 048
     Dates: start: 20200124
  15. RINGERS SOLUTION [Concomitant]
     Active Substance: CALCIUM CHLORIDE\POTASSIUM CHLORIDE\SODIUM CHLORIDE
     Indication: PRODUCT USED FOR UNKNOWN INDICATION
     Route: 042
     Dates: end: 20200124

REACTIONS (51)
  - Dizziness [Unknown]
  - Facial asymmetry [Unknown]
  - Pyrexia [Recovered/Resolved]
  - General physical health deterioration [Not Recovered/Not Resolved]
  - Haemoglobin decreased [Not Recovered/Not Resolved]
  - Haematocrit decreased [Unknown]
  - Oral disorder [Unknown]
  - Bradykinesia [Unknown]
  - Pneumonia [Fatal]
  - Wheezing [Not Recovered/Not Resolved]
  - Unevaluable event [Unknown]
  - Red blood cell count decreased [Unknown]
  - Monocyte count increased [Unknown]
  - Increased upper airway secretion [Unknown]
  - Speech disorder [Unknown]
  - Akinesia [Unknown]
  - Nausea [Unknown]
  - Hyporeflexia [Unknown]
  - C-reactive protein increased [Unknown]
  - Cough [Unknown]
  - Gamma-glutamyltransferase decreased [Unknown]
  - Pneumonia aspiration [Fatal]
  - Musculoskeletal stiffness [Recovering/Resolving]
  - Dysdiadochokinesis [Not Recovered/Not Resolved]
  - Upper motor neurone lesion [Unknown]
  - Alanine aminotransferase decreased [Unknown]
  - Choking [Unknown]
  - Gait inability [Unknown]
  - Muscular weakness [Unknown]
  - Vitamin B2 deficiency [Unknown]
  - Vitamin B6 deficiency [Unknown]
  - Blood creatine phosphokinase decreased [Unknown]
  - Laryngeal disorder [Unknown]
  - Pupils unequal [Unknown]
  - Dysphagia [Not Recovered/Not Resolved]
  - Neutrophil count decreased [Unknown]
  - Immunodeficiency [Unknown]
  - Dysarthria [Unknown]
  - Breath sounds abnormal [Unknown]
  - Hypocalcaemia [Unknown]
  - Glomerular filtration rate decreased [Unknown]
  - Activated partial thromboplastin time shortened [Unknown]
  - Lymphocyte count decreased [Unknown]
  - Parkinsonism [Not Recovered/Not Resolved]
  - Asthenia [Unknown]
  - Hypoaesthesia [Unknown]
  - Blood creatinine decreased [Unknown]
  - White blood cell count decreased [Unknown]
  - Dysphonia [Unknown]
  - Secretion discharge [Unknown]
  - Abdominal distension [Unknown]

NARRATIVE: CASE EVENT DATE: 201912
